FAERS Safety Report 4710651-2 (Version None)
Quarter: 2005Q3

REPORT INFORMATION
  Report Type: 
  Country: None (occurrence: None)
  Receive Date: 20050707
  Receipt Date: 20050616
  Transmission Date: 20060218
  Serious: Yes (Death, Hospitalization, Other)
  Sender: FDA-Public Use
  Company Number: EWC050644386

PATIENT
  Age: 12 Year
  Sex: Female

DRUGS (1)
  1. HUMULIN 70/30 [Suspect]
     Indication: DIABETES MELLITUS INSULIN-DEPENDENT
     Dosage: 25 IU DAY
     Dates: end: 20050601

REACTIONS (9)
  - BLOOD POTASSIUM ABNORMAL [None]
  - CARDIAC ARREST [None]
  - COMA [None]
  - CONVULSION [None]
  - DECEREBRATION [None]
  - DIABETIC KETOACIDOSIS [None]
  - GASTROENTERITIS [None]
  - HYPOTENSION [None]
  - PHARMACEUTICAL PRODUCT COMPLAINT [None]
